FAERS Safety Report 15402730 (Version 2)
Quarter: 2018Q4

REPORT INFORMATION
  Report Type: Other
  Country: None (occurrence: US)
  Receive Date: 20180919
  Receipt Date: 20181031
  Transmission Date: 20190204
  Serious: No
  Sender: FDA-Public Use
  Company Number: US-MERZ NORTH AMERICA, INC.-18MRZ-00489

PATIENT
  Sex: Female
  Weight: 68.1 kg

DRUGS (1)
  1. XEOMIN [Suspect]
     Active Substance: INCOBOTULINUMTOXINA
     Indication: SKIN COSMETIC PROCEDURE
     Dosage: 45 UNITS
     Dates: start: 20180706

REACTIONS (2)
  - Drug effect decreased [Unknown]
  - Patient dissatisfaction with treatment [Unknown]
